FAERS Safety Report 16833765 (Version 1)
Quarter: 2019Q3

REPORT INFORMATION
  Report Type: Spontaneous
  Country: FR (occurrence: FR)
  Receive Date: 20190920
  Receipt Date: 20190920
  Transmission Date: 20191005
  Serious: Yes (Other)
  Sender: FDA-Public Use
  Company Number: PHHY2019FR216048

PATIENT
  Sex: Female
  Weight: 65 kg

DRUGS (1)
  1. TACROLIMUS. [Suspect]
     Active Substance: TACROLIMUS
     Indication: IMMUNOSUPPRESSION
     Dosage: 8 MG, QD
     Route: 048
     Dates: start: 20160901

REACTIONS (4)
  - Genital herpes [Recovered/Resolved]
  - Malignant melanoma [Not Recovered/Not Resolved]
  - Urinary tract infection [Recovered/Resolved]
  - Bowen^s disease [Not Recovered/Not Resolved]

NARRATIVE: CASE EVENT DATE: 201809
